FAERS Safety Report 7228500-X (Version None)
Quarter: 2011Q1

REPORT INFORMATION
  Report Type: 
  Country: None (occurrence: None)
  Receive Date: 20110117
  Receipt Date: 20110110
  Transmission Date: 20110831
  Serious: Yes (Other)
  Sender: FDA-Public Use
  Company Number: US-ASTRAZENECA-2008UW21059

PATIENT
  Sex: Male
  Weight: 132.9 kg

DRUGS (13)
  1. LOTREL [Concomitant]
     Dosage: 5/20 MG
     Dates: start: 20030304
  2. SEROQUEL [Suspect]
     Route: 048
     Dates: start: 20070101
  3. ZOLOFT [Concomitant]
     Dates: start: 20021203
  4. ZOLOFT [Concomitant]
     Route: 048
     Dates: start: 20070101
  5. BUPROPION HCL [Concomitant]
     Dates: start: 20021223
  6. OMEPRAZOLE [Concomitant]
     Dates: start: 20030111
  7. NADOLOL [Concomitant]
     Route: 048
     Dates: start: 20070101
  8. TEMAZEPAM [Concomitant]
     Dates: start: 20021125
  9. CYTOMEL [Concomitant]
     Dates: start: 20021229
  10. SEROQUEL [Suspect]
     Route: 048
     Dates: start: 20021223
  11. BUPROPION HCL [Concomitant]
     Route: 048
     Dates: start: 20070101
  12. LOTREL [Concomitant]
     Dosage: 5 MG-20 MG 1 PO Q HS DISPENSE
     Route: 048
     Dates: start: 20070101
  13. IMITREX [Concomitant]
     Dosage: 5 MG AS DIR
     Route: 045
     Dates: start: 20070101

REACTIONS (3)
  - RENAL DISORDER [None]
  - PANCREATIC DISORDER [None]
  - LIVER DISORDER [None]
